FAERS Safety Report 6506089-8 (Version None)
Quarter: 2009Q4

REPORT INFORMATION
  Report Type: 
  Country: None (occurrence: None)
  Receive Date: 20091218
  Receipt Date: 20091211
  Transmission Date: 20100525
  Serious: Yes (Other)
  Sender: FDA-Public Use
  Company Number: BR-JNJFOC-20091205114

PATIENT
  Sex: Male

DRUGS (2)
  1. CETONAX [Suspect]
     Indication: FUNGAL INFECTION
     Route: 065
  2. OMEPRAZOLE [Concomitant]
     Indication: GASTRITIS
     Route: 065

REACTIONS (1)
  - HAEMATOCHEZIA [None]
